FAERS Safety Report 19720986 (Version 1)
Quarter: 2021Q3

REPORT INFORMATION
  Report Type: Report from Study
  Country: CR (occurrence: CR)
  Receive Date: 20210819
  Receipt Date: 20210819
  Transmission Date: 20211014
  Serious: Yes (Other)
  Sender: FDA-Public Use
  Company Number: NVSC2021CR185854

PATIENT
  Age: 69 Year
  Sex: Female

DRUGS (5)
  1. EXFORGE [Suspect]
     Active Substance: AMLODIPINE BESYLATE\VALSARTAN
     Dosage: UNK
     Route: 065
  2. EXFORGE [Suspect]
     Active Substance: AMLODIPINE BESYLATE\VALSARTAN
     Dosage: 5/320
     Route: 065
  3. EXFORGE [Suspect]
     Active Substance: AMLODIPINE BESYLATE\VALSARTAN
     Indication: PRODUCT USED FOR UNKNOWN INDICATION
     Dosage: 10/320 MG
     Route: 065
  4. EXFORGE [Suspect]
     Active Substance: AMLODIPINE BESYLATE\VALSARTAN
     Dosage: 5/160
     Route: 065
  5. DIOVAN [Suspect]
     Active Substance: VALSARTAN
     Indication: PRODUCT USED FOR UNKNOWN INDICATION
     Dosage: 160 MG
     Route: 065

REACTIONS (2)
  - Wrong technique in product usage process [Unknown]
  - Hypertension [Unknown]
